FAERS Safety Report 4480773-2 (Version None)
Quarter: 2004Q4

REPORT INFORMATION
  Report Type: 
  Country: None (occurrence: None)
  Receive Date: 20041019
  Receipt Date: 20010730
  Transmission Date: 20050328
  Serious: Yes (Other)
  Sender: FDA-Public Use
  Company Number: EM2001-1389

PATIENT
  Age: 4 Year
  Sex: 0

DRUGS (1)
  1. PROLEUKIN [Suspect]
     Indication: HIV INFECTION
     Dosage: 1 MIU/M2, QD, CONT IV INFUS
     Route: 042

REACTIONS (2)
  - BLOOD GLUCOSE INCREASED [None]
  - BLOOD SODIUM DECREASED [None]
